FAERS Safety Report 9641573 (Version 2)
Quarter: 2013Q4

REPORT INFORMATION
  Report Type: Report from Study
  Country: BR (occurrence: BR)
  Receive Date: 20131023
  Receipt Date: 20131023
  Transmission Date: 20140711
  Serious: Yes (Other)
  Sender: FDA-Public Use
  Company Number: BR-ABBVIE-13P-020-1138844-00

PATIENT
  Age: 21 Year
  Sex: Female
  Weight: 66.5 kg

DRUGS (2)
  1. HUMIRA [Suspect]
     Indication: PSORIASIS
     Route: 058
     Dates: start: 20130517
  2. HUMIRA [Suspect]
     Route: 058
     Dates: end: 201307

REACTIONS (4)
  - Drug-induced liver injury [Recovered/Resolved]
  - Glucose tolerance impaired [Unknown]
  - Insulin resistance [Unknown]
  - Headache [Recovered/Resolved]
